FAERS Safety Report 25381761 (Version 3)
Quarter: 2025Q3

REPORT INFORMATION
  Report Type: Spontaneous
  Country: EU (occurrence: EU)
  Receive Date: 20250531
  Receipt Date: 20250704
  Transmission Date: 20251021
  Serious: Yes (Other)
  Sender: AUROBINDO
  Company Number: EU-TEVA-VS-3330587

PATIENT
  Age: 42 Year
  Sex: Male

DRUGS (5)
  1. SIMVASTATIN [Interacting]
     Active Substance: SIMVASTATIN
     Indication: Hypertension
     Dosage: 40 MILLIGRAM, ONCE A DAY(40 MILLIGRAM, QD)
     Route: 065
  2. SIMVASTATIN [Interacting]
     Active Substance: SIMVASTATIN
     Indication: Dyslipidaemia
  3. SEMAGLUTIDE [Interacting]
     Active Substance: SEMAGLUTIDE
     Indication: Weight control
     Dosage: 1 MILLIGRAM, EVERY WEEK(1 MILLIGRAM, QW (1 MG, ONCE A WEEK ))
     Route: 065
  4. TELMISARTAN [Concomitant]
     Active Substance: TELMISARTAN
     Indication: Hypertension
     Route: 065
  5. INDAPAMIDE [Concomitant]
     Active Substance: INDAPAMIDE
     Indication: Hypertension
     Route: 065

REACTIONS (2)
  - Pancreatitis acute [Unknown]
  - Drug interaction [Unknown]
